FAERS Safety Report 8622797-7 (Version None)
Quarter: 2012Q3

REPORT INFORMATION
  Report Type: 
  Country: None (occurrence: None)
  Receive Date: 20120813
  Receipt Date: 20120308
  Transmission Date: 20120928
  Serious: Yes (Hospitalization)
  Sender: FDA-Public Use
  Company Number: 2012031556

PATIENT
  Age: 45 Year
  Sex: Female
  Weight: 104.3273 kg

DRUGS (17)
  1. BIOTIN [Concomitant]
  2. XOPENEX [Concomitant]
  3. SINGULAIR [Concomitant]
  4. OXYGEN [Concomitant]
  5. SYMBICORT [Concomitant]
  6. VITAMIN D [Concomitant]
  7. DIGESTIVE PROBIOTIC (LACTOBACILLUS ACIDOPHILUS) [Concomitant]
  8. ALPRAZOLAM [Concomitant]
  9. XANAX [Concomitant]
  10. PROTONIX [Concomitant]
  11. IPRATROPIUM BROMIDE [Concomitant]
  12. ALBUTEROL [Concomitant]
  13. CODEINE SULFATE [Concomitant]
  14. ZEMAIRA [Suspect]
     Indication: ALPHA-1 ANTI-TRYPSIN DEFICIENCY
     Dosage: (60 MG/KG 1X/WEEK, 953 MG VIAL INTRAVENOUS (NOT OTHERWISE SPECIFIED))
     Route: 042
     Dates: start: 20090101
  15. ZEMAIRA [Suspect]
     Indication: ALPHA-1 ANTI-TRYPSIN DEFICIENCY
     Dosage: (60 MG/KG 1X/WEEK, 953 MG VIAL INTRAVENOUS (NOT OTHERWISE SPECIFIED))
     Route: 042
     Dates: start: 20120301, end: 20120301
  16. COMBIVENT [Concomitant]
  17. LEVOTHYROXINE SODIUM [Concomitant]

REACTIONS (8)
  - DYSPNOEA [None]
  - OXYGEN SATURATION DECREASED [None]
  - TOOTH LOSS [None]
  - WEIGHT DECREASED [None]
  - VOMITING [None]
  - NAUSEA [None]
  - ANXIETY [None]
  - PULMONARY ARTERIAL HYPERTENSION [None]
